FAERS Safety Report 18845123 (Version 1)
Quarter: 2021Q1

REPORT INFORMATION
  Report Type: Spontaneous
  Country: IN (occurrence: IN)
  Receive Date: 20210204
  Receipt Date: 20210204
  Transmission Date: 20210419
  Serious: Yes (Hospitalization)
  Sender: FDA-Public Use
  Company Number: IN-MYLANLABS-2021M1007337

PATIENT
  Age: 38 Year
  Sex: Male

DRUGS (5)
  1. TRAMADOL. [Suspect]
     Active Substance: TRAMADOL
     Indication: SUBSTANCE USE
     Dosage: HE GRADUALLY INCREASED THE DOSES OF TRAMADOL..
     Route: 065
  2. SILDENAFIL. [Suspect]
     Active Substance: SILDENAFIL
     Indication: SEXUAL DYSFUNCTION
     Dosage: 50 MILLIGRAM HE INCREASED ITS USE TO UP TO 10 TO 12..
     Route: 065
  3. SILDENAFIL. [Suspect]
     Active Substance: SILDENAFIL
     Dosage: 2000 MILLIGRAM THE MAXIMUM TOTAL DOSE OF SILDENAFIL USED BY..
     Route: 065
  4. SILDENAFIL. [Suspect]
     Active Substance: SILDENAFIL
     Indication: SUBSTANCE USE
     Dosage: 50 MILLIGRAM HE STARTED WITH 1 TO 2 TABLETS..
     Route: 065
  5. ALPRAZOLAM. [Suspect]
     Active Substance: ALPRAZOLAM
     Indication: SUBSTANCE USE
     Dosage: HE GRADUALLY INCREASED THE DOSES OF ALPRAZOLAM OVER THE..
     Route: 048

REACTIONS (6)
  - Drug abuse [Unknown]
  - Drug tolerance [Unknown]
  - Drug dependence [Unknown]
  - Intentional overdose [Unknown]
  - Withdrawal syndrome [Unknown]
  - Substance use disorder [Unknown]
